FAERS Safety Report 9372600 (Version 1)
Quarter: 2013Q2

REPORT INFORMATION
  Report Type: Report from Study
  Country: BR (occurrence: BR)
  Receive Date: 20130627
  Receipt Date: 20130627
  Transmission Date: 20140414
  Serious: Yes (Other)
  Sender: FDA-Public Use
  Company Number: BR-ROCHE-1238372

PATIENT
  Sex: Male
  Weight: 54 kg

DRUGS (2)
  1. INTERFERON ALFA-2A [Suspect]
     Indication: HEPATITIS C
     Route: 065
     Dates: start: 2008
  2. RIBAVIRIN [Suspect]
     Indication: HEPATITIS C
     Route: 065
     Dates: start: 2008

REACTIONS (5)
  - Anaemia [Unknown]
  - Drug ineffective [Unknown]
  - Headache [Recovered/Resolved]
  - Malaise [Unknown]
  - Feeling of despair [Recovered/Resolved]
